FAERS Safety Report 6571831-7 (Version None)
Quarter: 2010Q1

REPORT INFORMATION
  Report Type: 
  Country: None (occurrence: None)
  Receive Date: 20100205
  Receipt Date: 20100126
  Transmission Date: 20100710
  Serious: Yes (Other)
  Sender: FDA-Public Use
  Company Number: US-BAYER-US-2006-020561

PATIENT
  Age: 49 Year
  Sex: Female
  Weight: 84 kg

DRUGS (26)
  1. CLIMARA [Suspect]
     Indication: OSTEOPOROSIS
     Dosage: .625 MG/D, CONT
     Route: 062
     Dates: start: 19970701, end: 19971201
  2. PROVERA [Suspect]
     Indication: OSTEOPOROSIS
     Dosage: UNIT DOSE: 5 MG
     Route: 048
     Dates: start: 19960920, end: 19971201
  3. PREMPRO [Suspect]
     Indication: OSTEOPOROSIS
     Dosage: 0.625/5 MG, UNK
     Route: 048
     Dates: start: 19970201, end: 20020801
  4. NAPROXEN [Concomitant]
     Indication: BACK PAIN
     Dosage: UNK, UNK
     Dates: start: 19990911
  5. NORVASC [Concomitant]
     Indication: HYPERTENSION
     Dosage: UNK, UNK
     Dates: start: 20040714
  6. LORAZEPAM [Concomitant]
     Indication: PHOBIA OF DRIVING
     Dosage: .5 MG, UNK
     Dates: start: 20010808
  7. LIDOCAINE HCL VISCOUS [Concomitant]
     Dosage: 2 %, UNK
     Dates: start: 20030201
  8. PREDNISONE [Concomitant]
     Indication: FACIAL PALSY
     Dosage: 10 MG, UNK DECREASING AMOUNT TO BE TITRATED SLOWLY
     Route: 048
     Dates: start: 20030410
  9. CLEOCIN [Concomitant]
     Indication: VAGINAL INFECTION
     Dosage: 2 %, UNK
     Route: 067
     Dates: start: 20040625
  10. CLEOCIN [Concomitant]
     Dates: start: 20010927
  11. METHOCARBAMOL [Concomitant]
     Dosage: 500 MG, UNK
     Dates: start: 20030520
  12. LOPROX [Concomitant]
     Indication: TINEA PEDIS
     Dosage: .77 %, UNK ON FEET FOR 3 WEEKS
     Route: 061
     Dates: start: 20030708
  13. TRIAMCINOLONE [Concomitant]
     Dosage: .1 %, UNK
     Route: 061
     Dates: start: 20030708
  14. ECONAZOLE NITRATE [Concomitant]
     Dosage: 1 %, UNK
     Route: 061
     Dates: start: 20040501
  15. NYSTOP [Concomitant]
     Dosage: 100,000 U/GM POWDER
     Dates: start: 20040501
  16. INDOMETHACIN [Concomitant]
     Indication: ARTHRITIS
     Dosage: 50 MG, UNK
     Dates: start: 20040515
  17. HYDROMET [Concomitant]
     Dosage: UNK, UNK
     Dates: start: 20000315
  18. CLARITIN [Concomitant]
     Dosage: 10 MG, UNK
     Dates: start: 19990927
  19. ENTEX SOLUTION [Concomitant]
     Dosage: UNK TAB(S), UNK
     Dates: start: 20000315
  20. AMOXICILLIN [Concomitant]
     Dosage: 500 MG, UNK
     Dates: start: 20000315
  21. TERAZOL 7 [Concomitant]
     Indication: INSOMNIA
     Dosage: AT NITE ( HS)
     Route: 048
     Dates: start: 20000908
  22. BIAXIN [Concomitant]
     Dosage: 500 MG, UNK
     Dates: start: 20010203
  23. FENESIN TABLET [Concomitant]
     Dosage: 600 MG, UNK
     Dates: start: 20010203
  24. ALBUTEROL [Concomitant]
     Indication: BRONCHITIS
     Dosage: 90 ?G, UNK
     Route: 055
     Dates: start: 20010203
  25. SCOP [Concomitant]
     Dosage: 1.5 MG/72 HR
     Route: 062
     Dates: start: 20020731
  26. XALATAN [Concomitant]
     Indication: GLAUCOMA

REACTIONS (4)
  - BREAST CANCER METASTATIC [None]
  - CELLULITIS [None]
  - MUSCULOSKELETAL PAIN [None]
  - OEDEMA PERIPHERAL [None]
